FAERS Safety Report 4549314-5 (Version None)
Quarter: 2004Q4

REPORT INFORMATION
  Report Type: 
  Country: None (occurrence: None)
  Receive Date: 20041230
  Receipt Date: 20040616
  Transmission Date: 20050328
  Serious: Yes (Hospitalization)
  Sender: FDA-Public Use
  Company Number: 04-06-0862

PATIENT
  Age: 27 Year
  Sex: Female
  Weight: 78.9259 kg

DRUGS (2)
  1. CLOZAPINE [Suspect]
     Indication: PARANOIA
     Dosage: 150 MG QAM ORAL
     Route: 048
     Dates: start: 20040427, end: 20040512
  2. CLOZAPINE [Suspect]
     Indication: SCHIZOPHRENIA
     Dosage: 150 MG QAM ORAL
     Route: 048
     Dates: start: 20040427, end: 20040512

REACTIONS (1)
  - SUICIDAL IDEATION [None]
